FAERS Safety Report 9515969 (Version 1)
Quarter: 2013Q3

REPORT INFORMATION
  Report Type: Spontaneous
  Country: FR (occurrence: FR)
  Receive Date: 20130911
  Receipt Date: 20130911
  Transmission Date: 20140515
  Serious: Yes (Hospitalization)
  Sender: FDA-Public Use
  Company Number: FR-SANOFI-AVENTIS-2013SA089682

PATIENT
  Age: 105 Year
  Sex: Male

DRUGS (6)
  1. LASILIX [Suspect]
     Indication: HYPERTENSION
     Dosage: STRENGTH: 40 MG
     Route: 048
     Dates: end: 20130526
  2. LASILIX [Suspect]
     Indication: HYPERTENSION
     Route: 048
     Dates: start: 20130527, end: 20130602
  3. ZYLORIC [Concomitant]
     Indication: GOUT
     Route: 048
  4. DOLIPRANE [Concomitant]
     Route: 048
  5. SOLUPRED [Concomitant]
     Indication: BRONCHITIS
     Route: 048
     Dates: start: 20130527, end: 20130529
  6. AUGMENTIN [Concomitant]
     Indication: BRONCHITIS
     Route: 048
     Dates: start: 20130527

REACTIONS (1)
  - Confusional state [Recovered/Resolved]
